FAERS Safety Report 23621021 (Version 1)
Quarter: 2024Q1

REPORT INFORMATION
  Report Type: Spontaneous
  Country: CZ (occurrence: CZ)
  Receive Date: 20240312
  Receipt Date: 20240312
  Transmission Date: 20240409
  Serious: Yes (Death, Life-Threatening, Hospitalization, Other)
  Sender: FDA-Public Use
  Company Number: CZ-EMA-DD-20240228-7482677-065115

PATIENT
  Age: 3 Month
  Sex: Male

DRUGS (7)
  1. ALEMTUZUMAB [Suspect]
     Active Substance: ALEMTUZUMAB
     Indication: Immunodeficiency
     Dosage: FROM DAYS -8 TO -6.
     Route: 065
  2. BUSULFAN [Suspect]
     Active Substance: BUSULFAN
     Indication: Autologous haematopoietic stem cell transplant
     Dosage: UNK 500-700 NG/ML FROM DAYS -5 TO -2
     Route: 065
  3. CYCLOSPORINE [Suspect]
     Active Substance: CYCLOSPORINE
     Indication: Prophylaxis against transplant rejection
     Dosage: UNK
     Route: 065
  4. FLUDARABINE [Suspect]
     Active Substance: FLUDARABINE PHOSPHATE
     Indication: Immunodeficiency
     Dosage: UNK FROM DAYS -6 TO -3
     Route: 065
  5. GANCICLOVIR [Suspect]
     Active Substance: GANCICLOVIR
     Indication: Product used for unknown indication
     Dosage: UNK AT THE AGE OF 26 MONTHS
     Route: 065
  6. GANCICLOVIR [Suspect]
     Active Substance: GANCICLOVIR
     Indication: Cytomegalovirus infection
     Dosage: UNK AT THE AGE OF 3 MONTHS
     Route: 065
  7. MYCOPHENOLATE MOFETIL [Suspect]
     Active Substance: MYCOPHENOLATE MOFETIL
     Indication: Prophylaxis against transplant rejection
     Dosage: UNK
     Route: 065

REACTIONS (14)
  - Scrotal abscess [Fatal]
  - Neutropenia [Fatal]
  - Upper respiratory tract infection [Fatal]
  - Septic shock [Fatal]
  - Malnutrition [Fatal]
  - Cytomegalovirus infection reactivation [Fatal]
  - Sepsis [Fatal]
  - Off label use [Fatal]
  - Failure to thrive [Fatal]
  - Vomiting [Fatal]
  - Multiple organ dysfunction syndrome [Fatal]
  - Dysphagia [Fatal]
  - Mucosal inflammation [Fatal]
  - Abdominal pain [Fatal]
